FAERS Safety Report 12675794 (Version 1)
Quarter: 2016Q3

REPORT INFORMATION
  Report Type: Spontaneous
  Country: None (occurrence: None)
  Receive Date: 20160822
  Receipt Date: 20160822
  Transmission Date: 20161109
  Serious: Yes (Disabling)
  Sender: FDA-Public Use
  Company Number: None

PATIENT
  Age: 35 Year
  Sex: Female
  Weight: 86.18 kg

DRUGS (5)
  1. DULOXETINE, 60 MG GENERIC [Suspect]
     Active Substance: DULOXETINE
     Indication: ANXIETY
     Dosage: 1 CAPSULE(S) IN THE MORNING TAKEN BY MOUTH
     Route: 048
     Dates: start: 20160201, end: 20160817
  2. DULOXETINE, 60 MG GENERIC [Suspect]
     Active Substance: DULOXETINE
     Indication: DEPRESSION
     Dosage: 1 CAPSULE(S) IN THE MORNING TAKEN BY MOUTH
     Route: 048
     Dates: start: 20160201, end: 20160817
  3. CYMBALTA [Concomitant]
     Active Substance: DULOXETINE HYDROCHLORIDE
  4. METOPROLOL. [Concomitant]
     Active Substance: METOPROLOL
  5. GABAPENTIN. [Concomitant]
     Active Substance: GABAPENTIN

REACTIONS (4)
  - Balance disorder [None]
  - Dizziness [None]
  - Vision blurred [None]
  - Drug dose omission [None]

NARRATIVE: CASE EVENT DATE: 20160818
